FAERS Safety Report 6713062-3 (Version None)
Quarter: 2010Q2

REPORT INFORMATION
  Report Type: 
  Country: None (occurrence: None)
  Receive Date: 20100506
  Receipt Date: 20100428
  Transmission Date: 20101027
  Serious: Yes (Other)
  Sender: FDA-Public Use
  Company Number: BR-ABBOTT-09P-020-0596950-00

PATIENT
  Sex: Female

DRUGS (2)
  1. HUMIRA [Suspect]
     Indication: DRUG USE FOR UNKNOWN INDICATION
     Dates: end: 20090301
  2. HUMIRA [Suspect]
     Dates: start: 20090401

REACTIONS (4)
  - BARTHOLIN'S CYST [None]
  - IMPAIRED HEALING [None]
  - INFLUENZA [None]
  - SINUSITIS [None]
